FAERS Safety Report 7527305-X (Version None)
Quarter: 2011Q2

REPORT INFORMATION
  Report Type: 
  Country: None (occurrence: None)
  Receive Date: 20110607
  Receipt Date: 20090930
  Transmission Date: 20111010
  Serious: Yes (Other)
  Sender: FDA-Public Use
  Company Number: US-BAYER-2011-008081

PATIENT
  Age: 73 Year
  Sex: Male
  Weight: 98 kg

DRUGS (13)
  1. TRASYLOL [Suspect]
     Indication: CORONARY ARTERY BYPASS
     Dosage: UNK
     Route: 042
     Dates: start: 20070615
  2. ACETYLSALICYLIC ACID SRT [Concomitant]
  3. ANCEF [Concomitant]
     Dosage: 1 G, UNK
     Route: 042
     Dates: start: 20070614, end: 20070614
  4. GLIPIZIDE [Concomitant]
  5. MANNITOL [Concomitant]
     Dosage: 50 ML, UNK
     Route: 042
     Dates: start: 20070614, end: 20070614
  6. CYKLOKAPRON [Concomitant]
     Dosage: 10 G, UNK
     Route: 042
  7. NEOSYNEPHRINE [Concomitant]
     Dosage: UNK
     Route: 042
     Dates: start: 20070614, end: 20070614
  8. RED BLOOD CELLS [Concomitant]
     Dosage: 750 ML, UNK
     Route: 042
  9. TRASYLOL [Suspect]
     Indication: MITRAL VALVE REPAIR
  10. EPINEPHRINE [Concomitant]
     Dosage: UNK
     Route: 042
     Dates: start: 20070614, end: 20070614
  11. ALBUMIN (HUMAN) [Concomitant]
     Dosage: UNK
     Route: 042
     Dates: start: 20070614, end: 20070614
  12. HEPARIN [Concomitant]
     Dosage: UNK
     Route: 042
     Dates: start: 20070614, end: 20070614
  13. INSULIN [Concomitant]
     Dosage: UNK
     Route: 042
     Dates: start: 20070614, end: 20070614

REACTIONS (13)
  - RENAL FAILURE [None]
  - ANXIETY [None]
  - PAIN [None]
  - PSYCHIATRIC SYMPTOM [None]
  - RENAL INJURY [None]
  - INJURY [None]
  - NERVOUSNESS [None]
  - DEPRESSION [None]
  - UNEVALUABLE EVENT [None]
  - FEAR [None]
  - FEAR OF DEATH [None]
  - EMOTIONAL DISTRESS [None]
  - MULTI-ORGAN FAILURE [None]
